FAERS Safety Report 15635815 (Version 2)
Quarter: 2018Q4

REPORT INFORMATION
  Report Type: Spontaneous
  Country: DE (occurrence: DE)
  Receive Date: 20181120
  Receipt Date: 20181214
  Transmission Date: 20190205
  Serious: Yes (Hospitalization)
  Sender: FDA-Public Use
  Company Number: DE-B.I. PHARMACEUTICALS,INC./RIDGEFIELD-2018-BI-056083

PATIENT
  Age: 57 Year
  Sex: Male
  Weight: 74 kg

DRUGS (18)
  1. HUMALOG [Concomitant]
     Active Substance: INSULIN LISPRO
     Indication: DIABETES MELLITUS
     Dosage: STRENGTH:  100 E/ML
     Route: 065
  2. URSOFALK [Concomitant]
     Active Substance: URSODIOL
     Indication: LIVER DISORDER
     Route: 065
  3. JARDIANCE [Suspect]
     Active Substance: EMPAGLIFLOZIN
     Indication: PRODUCT USED FOR UNKNOWN INDICATION
     Route: 065
     Dates: start: 201706
  4. CLOPIDOGREL BASICS [Concomitant]
     Active Substance: CLOPIDOGREL BISULFATE
     Indication: DRUG THERAPY
     Route: 065
  5. METFORMIN [Concomitant]
     Active Substance: METFORMIN HYDROCHLORIDE
     Indication: DIABETES MELLITUS
     Route: 065
  6. TORASEMID - 1 A PHARMA [Concomitant]
     Indication: BLOOD PRESSURE ABNORMAL
     Route: 065
  7. PANTOPRAZOL MICRO [Concomitant]
     Indication: PRODUCT USED FOR UNKNOWN INDICATION
     Route: 065
  8. CANDESARTAN BASICS [Concomitant]
     Indication: BLOOD PRESSURE ABNORMAL
     Route: 065
  9. ASS AL [Concomitant]
     Active Substance: ASPIRIN
     Indication: DRUG THERAPY
     Route: 065
  10. REPATHA [Concomitant]
     Active Substance: EVOLOCUMAB
     Indication: BLOOD CHOLESTEROL ABNORMAL
     Route: 065
  11. GABAPENTIN AUROBINDO [Concomitant]
     Active Substance: GABAPENTIN
     Indication: NEUROPATHY PERIPHERAL
     Route: 065
  12. ALDACTONE [Concomitant]
     Active Substance: SPIRONOLACTONE
     Indication: OEDEMA
     Dosage: STRENGHT 25 MILLIGRAM
     Route: 065
  13. TILIDIN [Concomitant]
     Active Substance: NALOXONE HYDROCHLORIDE\TILIDINE HYDROCHLORIDE
     Indication: PAIN
     Dosage: 100/8 RETARD
     Route: 065
  14. CITALOPRAM AL [Concomitant]
     Active Substance: CITALOPRAM HYDROBROMIDE
     Indication: DEPRESSION
     Route: 065
  15. HCT DEXCEL [Concomitant]
     Active Substance: HYDROCHLOROTHIAZIDE
     Indication: BLOOD PRESSURE ABNORMAL
     Route: 065
  16. LANTUS [Concomitant]
     Active Substance: INSULIN GLARGINE
     Indication: DIABETES MELLITUS
     Route: 065
  17. NOVAMINSULFON 1 A PHARMA [Concomitant]
     Indication: PAIN
     Route: 065
  18. TORASEMID - 1 A PHARMA [Concomitant]
     Indication: OEDEMA

REACTIONS (8)
  - Vomiting [Unknown]
  - Weight decreased [Unknown]
  - Ketoacidosis [Recovered/Resolved]
  - General physical health deterioration [Unknown]
  - Gastrointestinal disorder [Unknown]
  - Nausea [Unknown]
  - Hyperkalaemia [Unknown]
  - Altered state of consciousness [Unknown]

NARRATIVE: CASE EVENT DATE: 20170828
